FAERS Safety Report 20737320 (Version 1)
Quarter: 2022Q2

REPORT INFORMATION
  Report Type: Spontaneous
  Country: HK (occurrence: HK)
  Receive Date: 20220421
  Receipt Date: 20220421
  Transmission Date: 20220721
  Serious: Yes (Other)
  Sender: FDA-Public Use
  Company Number: HK-CELLTRION INC.-2022HK004828

PATIENT

DRUGS (1)
  1. RITUXIMAB [Suspect]
     Active Substance: RITUXIMAB
     Indication: Nephrotic syndrome
     Dosage: 375 MG/M2 (COURSE NUMBER: 2); CUMULATIVE DOSE AT COMPLICATION WAS 1125 MG/M2

REACTIONS (3)
  - Idiopathic intracranial hypertension [Unknown]
  - Drug effective for unapproved indication [Unknown]
  - Off label use [Unknown]
